FAERS Safety Report 10174886 (Version 1)
Quarter: 2014Q2

REPORT INFORMATION
  Report Type: Spontaneous
  Country: AU (occurrence: AU)
  Receive Date: 20140515
  Receipt Date: 20140515
  Transmission Date: 20141212
  Serious: Yes (Other)
  Sender: FDA-Public Use
  Company Number: AU-BAYER-2014-070710

PATIENT
  Sex: Female

DRUGS (14)
  1. ACETYLSALICYLIC ACID (} 100 MG) [Suspect]
     Route: 064
  2. ACETYLSALICYLIC ACID (} 100 MG) [Suspect]
     Route: 064
  3. ENOXAPARIN [Concomitant]
     Route: 064
  4. ENOXAPARIN [Concomitant]
     Route: 064
  5. HYDROXYCHLOROQUINE [Concomitant]
     Route: 064
  6. HYDROXYCHLOROQUINE [Concomitant]
     Route: 064
  7. PREDNISOLONE [Concomitant]
     Route: 064
  8. PREDNISOLONE [Concomitant]
     Route: 064
  9. WARFARIN [Concomitant]
     Route: 064
  10. WARFARIN [Concomitant]
     Route: 064
  11. AZATHIOPRINE [Concomitant]
     Route: 064
  12. AZATHIOPRINE [Concomitant]
     Route: 064
  13. PLASMA [Concomitant]
     Route: 064
  14. PLASMA [Concomitant]
     Route: 064

REACTIONS (3)
  - Low birth weight baby [None]
  - Premature baby [None]
  - Foetal exposure during pregnancy [None]
